FAERS Safety Report 13199748 (Version 1)
Quarter: 2017Q1

REPORT INFORMATION
  Report Type: Report from Study
  Country: None (occurrence: US)
  Receive Date: 20170208
  Receipt Date: 20170208
  Transmission Date: 20170428
  Serious: Yes (Other)
  Sender: FDA-Public Use
  Company Number: US-ABBVIE-17K-163-1862623-00

PATIENT
  Age: 50 Year
  Sex: Female
  Weight: 74.46 kg

DRUGS (4)
  1. ALPRAZOLAM. [Concomitant]
     Active Substance: ALPRAZOLAM
     Indication: ANXIETY
  2. HUMIRA [Suspect]
     Active Substance: ADALIMUMAB
     Indication: COLITIS ULCERATIVE
  3. HUMIRA [Suspect]
     Active Substance: ADALIMUMAB
     Indication: RHEUMATOID ARTHRITIS
     Route: 058
     Dates: start: 201602
  4. ALPRAZOLAM. [Concomitant]
     Active Substance: ALPRAZOLAM
     Indication: INSOMNIA

REACTIONS (4)
  - Fistula [Unknown]
  - Eye haemorrhage [Not Recovered/Not Resolved]
  - Sinusitis [Recovered/Resolved]
  - Retinal aneurysm [Not Recovered/Not Resolved]

NARRATIVE: CASE EVENT DATE: 201612
